FAERS Safety Report 15023795 (Version 1)
Quarter: 2018Q2

REPORT INFORMATION
  Report Type: Spontaneous
  Country: US (occurrence: US)
  Receive Date: 20180524
  Receipt Date: 20180524
  Transmission Date: 20180711
  Serious: Yes (Hospitalization)
  Sender: FDA-Public Use
  Company Number: None

PATIENT
  Age: 35 Year
  Sex: Male
  Weight: 105 kg

DRUGS (3)
  1. IFOSFAMIDE. [Suspect]
     Active Substance: IFOSFAMIDE
     Dates: end: 20180513
  2. G-CSF (FILGRASTIM, AMGEN) [Suspect]
     Active Substance: FILGRASTIM
     Dates: end: 20180517
  3. TAXOL [Suspect]
     Active Substance: PACLITAXEL
     Dates: end: 20180513

REACTIONS (5)
  - Musculoskeletal pain [None]
  - Diarrhoea [None]
  - Back pain [None]
  - Pain in extremity [None]
  - Abdominal pain [None]

NARRATIVE: CASE EVENT DATE: 20180513
